FAERS Safety Report 7719560-8 (Version None)
Quarter: 2011Q3

REPORT INFORMATION
  Report Type: 
  Country: None (occurrence: None)
  Receive Date: 20110830
  Receipt Date: 20110825
  Transmission Date: 20111222
  Serious: Yes (Hospitalization, Other)
  Sender: FDA-Public Use
  Company Number: US-ABBOTT-11P-163-0849378-00

PATIENT
  Sex: Female

DRUGS (3)
  1. UNKNOWN MEDICATION [Concomitant]
     Indication: CROHN'S DISEASE
     Dates: start: 20100101
  2. REMICAIDE [Concomitant]
     Indication: CROHN'S DISEASE
     Dates: start: 20100701
  3. HUMIRA [Suspect]
     Indication: CROHN'S DISEASE
     Route: 058
     Dates: start: 20080101, end: 20100101

REACTIONS (3)
  - ABDOMINAL PAIN [None]
  - PAIN [None]
  - ABORTION SPONTANEOUS [None]
